FAERS Safety Report 9040126 (Version 1)
Quarter: 2013Q1

REPORT INFORMATION
  Report Type: Report from Study
  Country: US (occurrence: US)
  Receive Date: 20130130
  Receipt Date: 20130130
  Transmission Date: 20140127
  Serious: Yes (Other)
  Sender: FDA-Public Use
  Company Number: US-ABBOTT-12P-163-0950757-00

PATIENT
  Age: 5 Year
  Sex: Female

DRUGS (3)
  1. HUMIRA [Suspect]
     Indication: MUCKLE-WELLS SYNDROME
  2. HUMIRA [Suspect]
  3. SINGULAIR [Concomitant]
     Indication: DYSPNOEA
     Dosage: DAILY

REACTIONS (3)
  - Umbilical hernia repair [Unknown]
  - Tonsillectomy [Unknown]
  - Alopecia [Not Recovered/Not Resolved]
